FAERS Safety Report 16556776 (Version 1)
Quarter: 2019Q3

REPORT INFORMATION
  Report Type: Spontaneous
  Country: US (occurrence: US)
  Receive Date: 20190711
  Receipt Date: 20190711
  Transmission Date: 20191004
  Serious: No
  Sender: FDA-Public Use
  Company Number: US-JNJFOC-20190636329

PATIENT
  Age: 85 Year
  Sex: Female
  Weight: 76.73 kg

DRUGS (10)
  1. NADOLOL. [Concomitant]
     Active Substance: NADOLOL
  2. ZYTIGA [Suspect]
     Active Substance: ABIRATERONE ACETATE
     Indication: PROSTATE CANCER
     Route: 048
  3. POTASSIUM [Concomitant]
     Active Substance: POTASSIUM
  4. PREDNISOLONE. [Concomitant]
     Active Substance: PREDNISOLONE
  5. RANITIDINE. [Concomitant]
     Active Substance: RANITIDINE
  6. ACYCLOVIR                          /00587301/ [Concomitant]
     Active Substance: ACYCLOVIR
  7. ROSUVASTATIN. [Concomitant]
     Active Substance: ROSUVASTATIN
  8. LISINOPRIL. [Concomitant]
     Active Substance: LISINOPRIL
  9. ASPIRIN. [Concomitant]
     Active Substance: ASPIRIN
  10. NITROGLYCERIN. [Concomitant]
     Active Substance: NITROGLYCERIN

REACTIONS (1)
  - Unevaluable event [Unknown]

NARRATIVE: CASE EVENT DATE: 201906
